FAERS Safety Report 9657670 (Version 1)
Quarter: 2013Q4

REPORT INFORMATION
  Report Type: Spontaneous
  Country: US (occurrence: None)
  Receive Date: 20131029
  Receipt Date: 20131029
  Transmission Date: 20140711
  Serious: Yes (Disabling, Congenital Anomaly)
  Sender: FDA-Public Use
  Company Number: 2013100113

PATIENT
  Age: 1 Day
  Sex: Female
  Weight: 1.95 kg

DRUGS (10)
  1. TORASEMIDE (TORASEMIDE) [Suspect]
     Indication: GLOMERULONEPHRITIS
     Dosage: 20-40 MG (DAILY, GESTATIONAL WEEK 0 TO 5+1),  TRANSPLACENTAL
     Route: 064
  2. PROGRAF [Suspect]
     Indication: NEPHROTIC SYNDROME
     Dosage: 2 MG (1 MG GESTATIONAL WEEK 0 TO MINIMUM 19+5 (PROB), TRANSPLACENTAL
     Route: 064
  3. PROGRAF [Suspect]
     Indication: GLOMERULONEPHRITIS MINIMAL LESION
     Dosage: 2 MG (1 MG GESTATIONAL WEEK 0 TO MINIMUM 19+5 (PROB), TRANSPLACENTAL
     Route: 064
  4. PREDNISOLON [Suspect]
     Indication: IMMUNE THROMBOCYTOPENIC PURPURA
     Dosage: 5MG UNITL WEEK 5+1, PAUSE, 100 MG FOR 3 DAYS, THE 40-20 MG/D, THEN 10MG/D, THEN 10 MG/D FROM WEEK 8 (GESTATIONAL WEEK 0 TO 35), TRANSPLACENTAL
     Route: 064
  5. FUROSEMID [Suspect]
     Indication: IMMUNE THROMBOCYTOPENIC PURPURA
     Dosage: OIF REQUIRED 40-80 MG (DAILY, GESTATIIONAL WEEK 5+2 TO 19+5), TRANSPLACENTAL
     Route: 064
  6. FLUVASTATIN [Suspect]
     Indication: HYPERCHOLESTEROLAEMIA
     Dosage: 20 MG (20 MG, GESTATIONAL WEEK 0 TO 6+5), TRANSPLACENTAL
     Route: 064
  7. RAMIPRIL (RAMIPRIL) [Suspect]
     Indication: GLOMERULONEPHRITIS
     Dosage: 2.5 MG (2.5 MG, GESTATIONAL WEEK 0 TO 6+5), TRANSPLACENTAL
     Route: 064
  8. OMEPRAZOL (OMEPRAZOLE) [Concomitant]
  9. IDEOS (CALCIUM, COLECALCIFEROL) [Concomitant]
  10. FOLSAURE [Concomitant]

REACTIONS (11)
  - Congenital musculoskeletal anomaly [None]
  - Retrognathia [None]
  - Premature rupture of membranes [None]
  - Caesarean section [None]
  - High arched palate [None]
  - Cleft palate [None]
  - Neck deformity [None]
  - Dysmorphism [None]
  - Patent ductus arteriosus [None]
  - Atrial septal defect [None]
  - Maternal drugs affecting foetus [None]
